FAERS Safety Report 9643175 (Version 2)
Quarter: 2013Q4

REPORT INFORMATION
  Report Type: Spontaneous
  Country: JP (occurrence: JP)
  Receive Date: 20131024
  Receipt Date: 20131210
  Transmission Date: 20140711
  Serious: Yes (Life-Threatening, Hospitalization)
  Sender: FDA-Public Use
  Company Number: JP-009507513-1310JPN009644

PATIENT
  Age: 31 Year
  Sex: Female
  Weight: 51 kg

DRUGS (3)
  1. MARVELON [Suspect]
     Indication: CONTRACEPTION
     Dosage: 1 DF, QD
     Route: 048
     Dates: start: 20131017, end: 20131018
  2. MARVELON [Suspect]
     Indication: MENSTRUATION IRREGULAR
  3. SOPHIA C [Concomitant]
     Indication: METRORRHAGIA
     Dosage: 1 DF, QD
     Route: 048
     Dates: start: 20130918, end: 20131008

REACTIONS (1)
  - Hereditary angioedema [Recovered/Resolved]
